FAERS Safety Report 20714441 (Version 2)
Quarter: 2022Q2

REPORT INFORMATION
  Report Type: Spontaneous
  Country: US (occurrence: US)
  Receive Date: 20220415
  Receipt Date: 20220511
  Transmission Date: 20220721
  Serious: Yes (Other)
  Sender: FDA-Public Use
  Company Number: US-BRISTOL-MYERS SQUIBB COMPANY-2022-019339

PATIENT
  Age: 81 Year
  Sex: Female

DRUGS (1)
  1. REVLIMID [Suspect]
     Active Substance: LENALIDOMIDE
     Indication: Mantle cell lymphoma
     Dosage: TAKE 1 CAPSULE BY MOUTH ONCE DAILY ON DAYS 1 THROUGH 7 OF EVERY 28-DAY CYCLE
     Route: 048
     Dates: start: 20181102

REACTIONS (2)
  - Infected bite [Unknown]
  - Animal bite [Unknown]

NARRATIVE: CASE EVENT DATE: 20220301
